FAERS Safety Report 10913699 (Version 1)
Quarter: 2015Q1

REPORT INFORMATION
  Report Type: Spontaneous
  Country: None (occurrence: None)
  Receive Date: 20150310
  Receipt Date: 20150310
  Transmission Date: 20150721
  Serious: Yes (Hospitalization)
  Sender: FDA-Public Use
  Company Number: None

PATIENT
  Age: 60 Year
  Sex: Female
  Weight: 59.5 kg

DRUGS (20)
  1. DIPHENOXYLATE-ATROPINC [Concomitant]
  2. CETIRIZINE HCL [Concomitant]
     Active Substance: CETIRIZINE HYDROCHLORIDE
  3. IRINOTECAN [Suspect]
     Active Substance: IRINOTECAN
     Route: 042
     Dates: start: 20141117, end: 20150224
  4. BENZONATATE. [Concomitant]
     Active Substance: BENZONATATE
  5. ATORVASTATIN [Concomitant]
     Active Substance: ATORVASTATIN
  6. BENZONATE [Concomitant]
     Active Substance: BENZONATATE
  7. ONDANSETRON [Concomitant]
     Active Substance: ONDANSETRON
  8. DIPHENHYDRAMINE-NYSTATIN-LIDOCAINE [Concomitant]
  9. GLYBURIDE-METFORMIN [Concomitant]
  10. LANSOPRAZOLE. [Concomitant]
     Active Substance: LANSOPRAZOLE
  11. LISINOPRIL. [Concomitant]
     Active Substance: LISINOPRIL
  12. HYROXYZINE [Concomitant]
  13. TIZANIDINE (TIZANIDINE) [Concomitant]
     Active Substance: TIZANIDINE
  14. CITALOPRAM [Concomitant]
     Active Substance: CITALOPRAM HYDROBROMIDE
  15. DIPHENOXYLATE-ATROPINE [Concomitant]
  16. HYDROCODONE-HOMATROPINE [Concomitant]
  17. MULTIVITAMIN [Concomitant]
     Active Substance: VITAMINS
  18. NIACIN. [Concomitant]
     Active Substance: NIACIN
  19. CARFILZOMIB [Suspect]
     Active Substance: CARFILZOMIB
     Indication: SMALL CELL LUNG CANCER
     Route: 042
     Dates: start: 20141117, end: 20150225
  20. BENZONATATE. [Concomitant]
     Active Substance: BENZONATATE

REACTIONS (5)
  - Confusional state [None]
  - Dysuria [None]
  - Dehydration [None]
  - Atelectasis [None]
  - Anaemia [None]

NARRATIVE: CASE EVENT DATE: 20150301
